FAERS Safety Report 10903484 (Version 1)
Quarter: 2015Q1

REPORT INFORMATION
  Report Type: Spontaneous
  Country: GB (occurrence: None)
  Receive Date: 20150304
  Receipt Date: 20150304
  Transmission Date: 20150721
  Serious: No
  Sender: FDA-Public Use
  Company Number: GB2015K0687SPO

PATIENT
  Age: 54 Year
  Sex: Female

DRUGS (1)
  1. LANSOPRAZOLE. [Suspect]
     Active Substance: LANSOPRAZOLE
     Route: 048
     Dates: start: 20130810, end: 20141213

REACTIONS (7)
  - Gait disturbance [None]
  - Nausea [None]
  - Fatigue [None]
  - Abasia [None]
  - Dizziness [None]
  - Hyperhidrosis [None]
  - Malaise [None]

NARRATIVE: CASE EVENT DATE: 20140406
